FAERS Safety Report 8853877 (Version 1)
Quarter: 2012Q4

REPORT INFORMATION
  Report Type: 
  Country: US (occurrence: US)
  Receive Date: 20121022
  Receipt Date: 20121022
  Transmission Date: 20130627
  Serious: Yes (Death)
  Sender: FDA-Public Use
  Company Number: US-GENZYME-CAMP-1002482

PATIENT
  Sex: Male

DRUGS (3)
  1. CAMPATH [Suspect]
     Indication: MYCOSIS FUNGOIDES
     Dosage: UNK
     Route: 065
     Dates: start: 20121003, end: 20121005
  2. CAMPATH [Suspect]
     Indication: MYCOSIS FUNGOIDES
     Dosage: UNK
     Route: 065
     Dates: start: 20121007, end: 20121007
  3. CAMPATH [Suspect]
     Dosage: UNK
     Route: 065
     Dates: start: 20121010, end: 20121010

REACTIONS (1)
  - Mycosis fungoides [Fatal]
